FAERS Safety Report 19996814 (Version 1)
Quarter: 2021Q4

REPORT INFORMATION
  Report Type: Report from Study
  Country: US (occurrence: US)
  Receive Date: 20211025
  Receipt Date: 20211025
  Transmission Date: 20220303
  Serious: Yes (Death, Hospitalization)
  Sender: FDA-Public Use
  Company Number: US-EXELIXIS-CABO-21044342

PATIENT
  Age: 52 Year
  Sex: Male

DRUGS (1)
  1. CABOMETYX [Suspect]
     Active Substance: CABOZANTINIB S-MALATE
     Indication: Renal cancer
     Dosage: 40 MG, QD
     Route: 048
     Dates: start: 20210804, end: 20210917

REACTIONS (3)
  - Pneumoperitoneum [Unknown]
  - Myocardial injury [Unknown]
  - Death [Fatal]

NARRATIVE: CASE EVENT DATE: 20210917
